FAERS Safety Report 7282513-0 (Version None)
Quarter: 2011Q1

REPORT INFORMATION
  Report Type: 
  Country: None (occurrence: None)
  Receive Date: 20110209
  Receipt Date: 20110127
  Transmission Date: 20110831
  Serious: Yes (Hospitalization, Other)
  Sender: FDA-Public Use
  Company Number: ES-ELI_LILLY_AND_COMPANY-ES201101006686

PATIENT
  Sex: Male

DRUGS (7)
  1. THEO-DUR [Concomitant]
     Indication: LUNG DISORDER
     Dosage: 200 MG, 2/D
     Route: 048
  2. NASONEX [Concomitant]
     Indication: NASAL MUCOSAL DISORDER
     Dosage: UNK, DAILY (1/D)
     Route: 055
  3. FLUSONAL [Concomitant]
     Indication: LUNG DISORDER
     Dosage: UNK, 2/D
     Route: 055
  4. TORSEMIDE [Concomitant]
     Indication: DIURETIC THERAPY
     Dosage: 10 MG, DAILY (1/D)
     Route: 048
  5. OMEPRAZOLE [Concomitant]
     Indication: GASTRITIS PROPHYLAXIS
     Dosage: UNK, DAILY (1/D)
     Route: 048
  6. FORTEO [Suspect]
     Indication: OSTEOPOROSIS
     Dosage: 20 UG, DAILY (1/D)
     Route: 058
     Dates: start: 20100701
  7. ACETILCISTEINA [Concomitant]
     Indication: INCREASED UPPER AIRWAY SECRETION
     Dosage: UNK, DAILY (1/D)
     Route: 048

REACTIONS (6)
  - DYSPNOEA [None]
  - RESPIRATORY TRACT INFECTION [None]
  - NASOPHARYNGITIS [None]
  - SWELLING FACE [None]
  - ABDOMINAL DISTENSION [None]
  - OEDEMA PERIPHERAL [None]
